FAERS Safety Report 18478888 (Version 2)
Quarter: 2021Q4

REPORT INFORMATION
  Report Type: Other
  Country: US (occurrence: None)
  Receive Date: 20201109
  Receipt Date: 20211103
  Transmission Date: 20220303
  Serious: Yes (Hospitalization, Other)
  Sender: FDA-Public Use
  Company Number: US-ROCHE-1980840

PATIENT
  Age: 56 Year
  Sex: Female
  Weight: 141.52 kg

DRUGS (23)
  1. CLONAZEPAM [Suspect]
     Active Substance: CLONAZEPAM
     Indication: Product used for unknown indication
     Route: 048
  2. OCREVUS [Suspect]
     Active Substance: OCRELIZUMAB
     Indication: Relapsing multiple sclerosis
     Route: 042
     Dates: start: 20180202, end: 20180215
  3. OCREVUS [Suspect]
     Active Substance: OCRELIZUMAB
     Dosage: MOST RECENT DOSE OF OCRELIZUMAB: 08/FEB/2019, 09/AUG/2019
     Route: 042
     Dates: start: 20180803
  4. BETASERON [Suspect]
     Active Substance: INTERFERON BETA-1B
     Indication: Product used for unknown indication
     Route: 058
     Dates: start: 2004
  5. ALPRAZOLAM [Concomitant]
     Active Substance: ALPRAZOLAM
     Indication: Anxiety
     Route: 048
  6. BACLOFEN [Concomitant]
     Active Substance: BACLOFEN
     Route: 048
     Dates: start: 20170720
  7. BACLOFEN [Concomitant]
     Active Substance: BACLOFEN
     Dates: start: 20160531
  8. FUROSEMIDE [Concomitant]
     Active Substance: FUROSEMIDE
     Route: 048
  9. FLUOXETINE HYDROCHLORIDE [Concomitant]
     Active Substance: FLUOXETINE HYDROCHLORIDE
     Route: 048
  10. LEVOTHYROXINE SODIUM [Concomitant]
     Active Substance: LEVOTHYROXINE SODIUM
     Route: 048
  11. LOSARTAN POTASSIUM [Concomitant]
     Active Substance: LOSARTAN POTASSIUM
     Route: 048
  12. MELOXICAM [Concomitant]
     Active Substance: MELOXICAM
     Route: 048
  13. POTASSIUM CHLORIDE [Concomitant]
     Active Substance: POTASSIUM CHLORIDE
     Route: 048
  14. SPIRONOLACTONE [Concomitant]
     Active Substance: SPIRONOLACTONE
     Route: 048
  15. NEURONTIN [Concomitant]
     Active Substance: GABAPENTIN
     Route: 048
     Dates: start: 20160502
  16. GABAPENTIN [Concomitant]
     Active Substance: GABAPENTIN
     Route: 048
  17. TECFIDERA [Concomitant]
     Active Substance: DIMETHYL FUMARATE
     Route: 048
     Dates: start: 20160203, end: 20170614
  18. CHOLESTYRAMINE [Concomitant]
     Active Substance: CHOLESTYRAMINE
     Dosage: 1 SCOOPFULL WITH WATER EVERY EVENING
     Route: 048
  19. KARIVA [Concomitant]
     Active Substance: DESOGESTREL\ETHINYL ESTRADIOL
     Route: 048
  20. DILTIAZEM HYDROCHLORIDE [Concomitant]
     Active Substance: DILTIAZEM HYDROCHLORIDE
     Route: 048
  21. ASPIRIN [Concomitant]
     Active Substance: ASPIRIN
  22. BENADRYL [Concomitant]
     Active Substance: DIPHENHYDRAMINE HYDROCHLORIDE
  23. METFORMIN HYDROCHLORIDE [Concomitant]
     Active Substance: METFORMIN HYDROCHLORIDE
     Route: 048

REACTIONS (43)
  - Deafness [Unknown]
  - Myoclonus [Unknown]
  - Asthma [Not Recovered/Not Resolved]
  - Lhermitte^s sign [Unknown]
  - Decreased interest [Unknown]
  - Asthenia [Unknown]
  - Pain [Recovered/Resolved]
  - Hypersomnia [Unknown]
  - Weight increased [Unknown]
  - Skin texture abnormal [Unknown]
  - Headache [Unknown]
  - Dry eye [Unknown]
  - Tinnitus [Unknown]
  - Urinary tract infection [Unknown]
  - Muscle spasms [Unknown]
  - Muscular weakness [Unknown]
  - Amnesia [Unknown]
  - Paraesthesia [Unknown]
  - Hypoaesthesia [Unknown]
  - Thirst [Unknown]
  - Polyuria [Unknown]
  - Anaemia [Unknown]
  - Increased tendency to bruise [Unknown]
  - Vision blurred [Unknown]
  - Anxiety [Unknown]
  - Initial insomnia [Unknown]
  - Flushing [Unknown]
  - Hot flush [Unknown]
  - Dizziness [Unknown]
  - Injection site reaction [Unknown]
  - Influenza [Not Recovered/Not Resolved]
  - Asthenia [Not Recovered/Not Resolved]
  - Dysgeusia [Not Recovered/Not Resolved]
  - Cough [Not Recovered/Not Resolved]
  - Dyskinesia [Not Recovered/Not Resolved]
  - Electric shock sensation [Recovered/Resolved]
  - Fall [Unknown]
  - Cerebral haemorrhage [Recovered/Resolved]
  - Mental impairment [Recovered/Resolved]
  - Speech disorder [Recovered/Resolved]
  - COVID-19 pneumonia [Not Recovered/Not Resolved]
  - Weight decreased [Recovered/Resolved]
  - Multiple sclerosis relapse [Recovered/Resolved]

NARRATIVE: CASE EVENT DATE: 20191230
